FAERS Safety Report 14514644 (Version 1)
Quarter: 2018Q1

REPORT INFORMATION
  Report Type: Spontaneous
  Country: US (occurrence: US)
  Receive Date: 20180209
  Receipt Date: 20180209
  Transmission Date: 20180509
  Serious: Yes (Other)
  Sender: FDA-Public Use
  Company Number: US-IMPAX LABORATORIES, INC-2018-IPXL-00359

PATIENT
  Age: 59 Year
  Sex: Male

DRUGS (1)
  1. ADRENACLICK [Suspect]
     Active Substance: EPINEPHRINE
     Indication: GENERAL ANAESTHESIA
     Dosage: 3 ML, UNK
     Route: 050

REACTIONS (2)
  - Hypertension [Recovered/Resolved]
  - Stress cardiomyopathy [Recovered/Resolved]
